FAERS Safety Report 14774134 (Version 1)
Quarter: 2018Q2

REPORT INFORMATION
  Report Type: Spontaneous
  Country: FR (occurrence: FR)
  Receive Date: 20180418
  Receipt Date: 20180418
  Transmission Date: 20180711
  Serious: Yes (Other)
  Sender: FDA-Public Use
  Company Number: FR-MERCK KGAA-2045938

PATIENT
  Age: 38 Year
  Sex: Male

DRUGS (1)
  1. NOVOTHYROX [Suspect]
     Active Substance: LEVOTHYROXINE SODIUM
     Indication: HYPOPITUITARISM

REACTIONS (25)
  - Sleep disorder [None]
  - Aggression [None]
  - Fatigue [None]
  - Myalgia [None]
  - Rash [None]
  - Insomnia [None]
  - Blood thyroid stimulating hormone decreased [None]
  - Disturbance in attention [None]
  - Tension [None]
  - Discomfort [None]
  - Irritability [None]
  - Apathy [None]
  - Anger [None]
  - Impaired work ability [None]
  - Loss of libido [None]
  - Nervousness [None]
  - Weight decreased [None]
  - Depression [None]
  - Pain [None]
  - Loss of personal independence in daily activities [None]
  - Headache [None]
  - Memory impairment [None]
  - Disorientation [None]
  - Social avoidant behaviour [None]
  - Asthenia [None]
